FAERS Safety Report 9667308 (Version 1)
Quarter: 2013Q4

REPORT INFORMATION
  Report Type: Spontaneous
  Country: US (occurrence: US)
  Receive Date: 20131104
  Receipt Date: 20131104
  Transmission Date: 20140711
  Serious: No
  Sender: FDA-Public Use
  Company Number: US-BIOGENIDEC-2013BI090719

PATIENT
  Age: 42 Year
  Sex: Male

DRUGS (1)
  1. TECFIDERA [Suspect]
     Indication: MULTIPLE SCLEROSIS
     Dates: start: 20130413, end: 20130917

REACTIONS (2)
  - Nuclear magnetic resonance imaging abnormal [Unknown]
  - Multiple sclerosis relapse [Not Recovered/Not Resolved]
